FAERS Safety Report 9266690 (Version 1)
Quarter: 2013Q2

REPORT INFORMATION
  Report Type: Spontaneous
  Country: IT (occurrence: IT)
  Receive Date: 20130502
  Receipt Date: 20130502
  Transmission Date: 20140414
  Serious: Yes (Other)
  Sender: FDA-Public Use
  Company Number: IT-PFIZER INC-2013135920

PATIENT
  Age: 5 Year
  Sex: Male

DRUGS (1)
  1. IBUPROFEN [Suspect]
     Indication: PYREXIA
     Dosage: 600 MG, UNK
     Route: 048
     Dates: start: 20130214, end: 20130216

REACTIONS (2)
  - Prothrombin time prolonged [Unknown]
  - Epistaxis [Recovered/Resolved]
